FAERS Safety Report 4990939-0 (Version None)
Quarter: 2006Q2

REPORT INFORMATION
  Report Type: 
  Country: None (occurrence: None)
  Receive Date: 20060503
  Receipt Date: 20060424
  Transmission Date: 20061013
  Serious: Yes (Hospitalization)
  Sender: FDA-Public Use
  Company Number: FR-MERCK-0604FRA00063

PATIENT
  Age: 52 Year
  Sex: Male

DRUGS (13)
  1. INDOCIN [Suspect]
     Indication: PAIN
     Route: 048
     Dates: start: 20060308
  2. INDOCIN [Suspect]
     Indication: MUCOSAL INFLAMMATION
     Route: 048
     Dates: start: 20060308
  3. ACYCLOVIR [Suspect]
     Indication: MUCOSAL INFLAMMATION
     Route: 042
     Dates: start: 20060308, end: 20060309
  4. OMEPRAZOLE [Concomitant]
     Route: 048
     Dates: start: 20060302
  5. ALFUZOSIN HYDROCHLORIDE [Concomitant]
     Route: 048
     Dates: start: 20060224
  6. MORPHINE [Suspect]
     Indication: PAIN
     Route: 051
     Dates: start: 20060308, end: 20060309
  7. MORPHINE [Suspect]
     Indication: MUCOSAL INFLAMMATION
     Route: 051
     Dates: start: 20060308, end: 20060309
  8. FLUCONAZOLE [Concomitant]
     Indication: MUCOSAL INFLAMMATION
     Route: 042
     Dates: start: 20060308
  9. PHENOBARBITAL [Concomitant]
     Indication: EPILEPSY
     Route: 048
  10. LEVOMEPROMAZINE [Concomitant]
     Route: 048
  11. BISOPROLOL [Concomitant]
     Route: 048
  12. FLUOXETINE HYDROCHLORIDE [Concomitant]
     Route: 048
  13. ENOXAPARIN SODIUM [Concomitant]
     Route: 065

REACTIONS (5)
  - COMA [None]
  - DYSPNOEA [None]
  - HYPOTENSION [None]
  - MIOSIS [None]
  - URINARY RETENTION [None]
